FAERS Safety Report 20851872 (Version 1)
Quarter: 2022Q2

REPORT INFORMATION
  Report Type: Spontaneous
  Country: ES (occurrence: ES)
  Receive Date: 20220520
  Receipt Date: 20220520
  Transmission Date: 20220721
  Serious: Yes (Life-Threatening, Other)
  Sender: FDA-Public Use
  Company Number: ES-AEMPS-1178846

PATIENT
  Age: 81 Year
  Sex: Female

DRUGS (15)
  1. MEROPENEM [Suspect]
     Active Substance: MEROPENEM
     Indication: Device related infection
     Dosage: UNK (1.0 G C/8 HOURS)
     Route: 042
     Dates: start: 20220415
  2. VANCOMYCIN HYDROCHLORIDE [Suspect]
     Active Substance: VANCOMYCIN HYDROCHLORIDE
     Indication: Device related infection
     Dosage: 1 GRAM, TWO TIMES A DAY
     Route: 042
     Dates: start: 20220415, end: 20220421
  3. DINISOR [Concomitant]
     Indication: Arrhythmia
     Dosage: 120 MILLIGRAM (CE)
     Route: 048
     Dates: start: 20210407
  4. CANDESARTAN [Concomitant]
     Active Substance: CANDESARTAN
     Indication: Hypertension
     Dosage: 8 MILLIGRAM (DE)
     Route: 048
     Dates: start: 20181004
  5. CALCIFEDIOL [Concomitant]
     Active Substance: CALCIFEDIOL
     Indication: Vitamin D
     Dosage: 0.266 MILLIGRAM, EVERY 15 DAYS
     Route: 048
     Dates: start: 20181004
  6. LORAZEPAM [Concomitant]
     Active Substance: LORAZEPAM
     Indication: Anxiety
     Dosage: 1 MILLIGRAM, ONCE A DAY
     Route: 048
     Dates: start: 20111024
  7. HYDROXYCHLOROQUINE SULFATE [Concomitant]
     Active Substance: HYDROXYCHLOROQUINE SULFATE
     Indication: Systemic lupus erythematosus
     Dosage: 200 MILLIGRAM (MA,JU,SA)
     Route: 048
     Dates: start: 20181005
  8. SYMBICORT [Concomitant]
     Active Substance: BUDESONIDE\FORMOTEROL FUMARATE DIHYDRATE
     Indication: Asthma
     Dosage: UNK (2.0 PUFF C/12 H )
     Route: 050
     Dates: start: 20190610
  9. Clovate [Concomitant]
     Indication: Dermatitis
     Dosage: UNK (1.0 APPLY W/24 H)
     Route: 061
     Dates: start: 20090212
  10. ASPARTIC ACID\POTASSIUM ASCORBATE [Concomitant]
     Active Substance: ASPARTIC ACID\POTASSIUM ASCORBATE
     Indication: Hypertension
     Dosage: UNK (25.0 MEQ DE)
     Route: 048
     Dates: start: 20210210
  11. FUROSEMID SANDOZ [Concomitant]
     Indication: Arrhythmia
     Dosage: UNK (40.0 MG A-DE)
     Route: 048
     Dates: start: 20200109
  12. Omeprazol Sandoz [Concomitant]
     Indication: Dyspepsia
     Dosage: UNK (40.0 MG A-DE)
     Route: 048
     Dates: start: 20181004
  13. VENTOLIN [Concomitant]
     Active Substance: ALBUTEROL SULFATE
     Indication: Asthma
     Dosage: UNK (100.0 MCG EVERY 8 HOURS)
     Route: 050
     Dates: start: 20181004
  14. SINTROM [Concomitant]
     Active Substance: ACENOCOUMAROL
     Indication: Peripheral venous disease
     Dosage: UNK (2.0 MG CE)
     Route: 048
     Dates: start: 20210209
  15. ESCITALOPRAM OXALATE [Concomitant]
     Active Substance: ESCITALOPRAM OXALATE
     Indication: Persistent depressive disorder
     Dosage: UNK (10.0 MG DE)
     Route: 048
     Dates: start: 20181004

REACTIONS (1)
  - Thrombocytopenia [Not Recovered/Not Resolved]

NARRATIVE: CASE EVENT DATE: 20220419
